FAERS Safety Report 10301800 (Version 3)
Quarter: 2014Q3

REPORT INFORMATION
  Report Type: Report from Study
  Country: US (occurrence: US)
  Receive Date: 20140714
  Receipt Date: 20140826
  Transmission Date: 20150326
  Serious: Yes (Hospitalization, Other)
  Sender: FDA-Public Use
  Company Number: PHBS2006US16679

PATIENT
  Age: 48 Year
  Sex: Female

DRUGS (10)
  1. BACLOFEN. [Suspect]
     Active Substance: BACLOFEN
     Indication: MUSCLE SPASTICITY
     Dosage: UNK UKN, UNK
     Route: 048
  2. AMITRIPTYLINE [Suspect]
     Active Substance: AMITRIPTYLINE
     Dosage: UNK UKN, UNK
  3. COPAXONE [Suspect]
     Active Substance: GLATIRAMER ACETATE
     Dosage: UNK UKN, UNK
  4. KLONOPIN [Suspect]
     Active Substance: CLONAZEPAM
     Dosage: UNK UKN, UNK
  5. TOPROL XL [Suspect]
     Active Substance: METOPROLOL SUCCINATE
     Dosage: UNK UKN, UNK
  6. CEFTRIAXONE. [Suspect]
     Active Substance: CEFTRIAXONE
     Dosage: UNK UKN, UNK
     Dates: end: 20060320
  7. NEURONTIN [Suspect]
     Active Substance: GABAPENTIN
     Dosage: UNK UKN, UNK
  8. SYNTHROID [Suspect]
     Active Substance: LEVOTHYROXINE SODIUM
     Dosage: UNK UKN, UNK
  9. LIORESAL [Suspect]
     Active Substance: BACLOFEN
     Indication: MUSCLE SPASTICITY
     Dosage: 500 UG, QD
     Route: 037
  10. VANCOMYCIN [Suspect]
     Active Substance: VANCOMYCIN
     Dosage: UNK UKN, UNK

REACTIONS (26)
  - Hypersensitivity [Recovered/Resolved]
  - Headache [Recovered/Resolved]
  - Vomiting [Recovered/Resolved]
  - Decreased appetite [Recovered/Resolved]
  - Drug withdrawal syndrome [Recovered/Resolved]
  - Pyrexia [Recovered/Resolved]
  - Therapeutic response decreased [Recovered/Resolved]
  - CSF glucose abnormal [Recovered/Resolved]
  - Infusion site cyst [Recovered/Resolved]
  - Chills [Recovered/Resolved]
  - Malaise [Recovered/Resolved]
  - Nausea [Recovered/Resolved]
  - Asthenia [Recovered/Resolved]
  - Hyperhidrosis [Recovered/Resolved]
  - Muscle spasms [Recovered/Resolved]
  - Gait disturbance [Recovered/Resolved]
  - CSF protein abnormal [Recovered/Resolved]
  - Photosensitivity reaction [Recovered/Resolved]
  - Fall [Recovered/Resolved]
  - CSF test abnormal [Recovered/Resolved]
  - Meningitis [Recovered/Resolved]
  - Cold sweat [Recovered/Resolved]
  - Drug hypersensitivity [Unknown]
  - CSF white blood cell count increased [Recovered/Resolved]
  - Musculoskeletal stiffness [Recovered/Resolved]
  - Muscle spasticity [Recovered/Resolved]

NARRATIVE: CASE EVENT DATE: 20060310
